FAERS Safety Report 6929794-8 (Version None)
Quarter: 2010Q3

REPORT INFORMATION
  Report Type: 
  Country: None (occurrence: None)
  Receive Date: 20100817
  Receipt Date: 20100817
  Transmission Date: 20110219
  Serious: Yes (Other)
  Sender: FDA-Public Use
  Company Number: None

PATIENT
  Age: 32 Year
  Sex: Female

DRUGS (1)
  1. NEOSPORIN LIP HEALTH OCTINOZATE 7.5% OXYBENZONE 3.0% JOHNSON AND JOHNS [Suspect]
     Indication: LIP DRY
     Dates: start: 20100816, end: 20100817

REACTIONS (3)
  - APPLICATION SITE REACTION [None]
  - DERMATITIS CONTACT [None]
  - LIP EXFOLIATION [None]
